FAERS Safety Report 7557237-2 (Version None)
Quarter: 2011Q2

REPORT INFORMATION
  Report Type: 
  Country: None (occurrence: None)
  Receive Date: 20110620
  Receipt Date: 20110418
  Transmission Date: 20111010
  Serious: No
  Sender: FDA-Public Use
  Company Number: US-MYLANLABS-2011S1008140

PATIENT
  Age: 67 Year
  Sex: Female

DRUGS (2)
  1. PERFOROMIST [Suspect]
     Indication: DYSPNOEA
     Route: 055
     Dates: start: 20110416
  2. ALBUTEROL SULFATE AUTOHALER [Concomitant]
     Dosage: YEARS BEFORE APR-2011

REACTIONS (1)
  - CHEST DISCOMFORT [None]
